FAERS Safety Report 21432658 (Version 1)
Quarter: 2022Q4

REPORT INFORMATION
  Report Type: Spontaneous
  Country: US (occurrence: US)
  Receive Date: 20221010
  Receipt Date: 20221010
  Transmission Date: 20230113
  Serious: Yes (Hospitalization, Other)
  Sender: FDA-Public Use
  Company Number: US-009507513-1209USA010304

PATIENT
  Sex: Female
  Weight: 76.372 kg

DRUGS (2)
  1. FOSAMAX [Suspect]
     Active Substance: ALENDRONATE SODIUM
     Indication: Osteoporosis prophylaxis
     Dosage: UNK UNK, QW
     Route: 048
     Dates: start: 20021015
  2. ACTONEL [Suspect]
     Active Substance: RISEDRONATE SODIUM
     Indication: Osteoporosis
     Dosage: 35 MG, QW
     Route: 048
     Dates: start: 2007, end: 20090505

REACTIONS (28)
  - Intramedullary rod insertion [Unknown]
  - Biopsy bone [Unknown]
  - Bowen^s disease [Unknown]
  - Wrist surgery [Unknown]
  - Cataract operation [Unknown]
  - Spinal compression fracture [Unknown]
  - Femur fracture [Recovered/Resolved]
  - Periodontal operation [Unknown]
  - Radius fracture [Unknown]
  - Ulna fracture [Unknown]
  - Fall [Unknown]
  - Systolic hypertension [Unknown]
  - Carpal tunnel syndrome [Unknown]
  - Osteoarthritis [Unknown]
  - Pernicious anaemia [Unknown]
  - Osteopenia [Unknown]
  - Carpal tunnel decompression [Unknown]
  - Electrocauterisation [Unknown]
  - Osteoarthritis [Unknown]
  - Osteoarthritis [Unknown]
  - Drug ineffective [Unknown]
  - Intervertebral disc degeneration [Unknown]
  - Spinal osteoarthritis [Unknown]
  - Impaired healing [Unknown]
  - Muscular weakness [Unknown]
  - Abdominal discomfort [Unknown]
  - Constipation [Unknown]
  - Myalgia [Unknown]

NARRATIVE: CASE EVENT DATE: 20030101
